FAERS Safety Report 9265992 (Version 2)
Quarter: 2013Q2

REPORT INFORMATION
  Report Type: Spontaneous
  Country: US (occurrence: US)
  Receive Date: 20130501
  Receipt Date: 20130611
  Transmission Date: 20140414
  Serious: Yes (Hospitalization, Other)
  Sender: FDA-Public Use
  Company Number: US-B.I. PHARMACEUTICALS,INC./RIDGEFIELD-2013-BI-11939BP

PATIENT
  Age: 77 Year
  Sex: Male
  Weight: 83.91 kg

DRUGS (9)
  1. PRADAXA [Suspect]
     Indication: ANTICOAGULANT THERAPY
     Dosage: 150 MG
     Dates: start: 20101202, end: 20110717
  2. PRADAXA [Suspect]
     Indication: ATRIAL FIBRILLATION
  3. AMIODARONE [Concomitant]
     Indication: ATRIAL FIBRILLATION
     Dosage: 200 MG
  4. PREDNISONE [Concomitant]
     Indication: RHEUMATOID ARTHRITIS
     Dosage: 5 MG
  5. ENTERIC COATED ASPIRIN [Concomitant]
     Indication: CORONARY ARTERY DISEASE
     Dosage: 325 MG
  6. COENZYME Q10 [Concomitant]
     Dosage: 100 MG
  7. RED YEAST RICE [Concomitant]
     Dosage: 600 MG
  8. CRANBERRY EXTRACT [Concomitant]
     Dosage: 1680 MG
  9. VITAMIN C [Concomitant]

REACTIONS (1)
  - Gastrointestinal haemorrhage [Unknown]
